FAERS Safety Report 8584856 (Version 2)
Quarter: 2013Q1

REPORT INFORMATION
  Report Type: Spontaneous
  Country: TR (occurrence: TR)
  Receive Date: 20120530
  Receipt Date: 20130228
  Transmission Date: 20140127
  Serious: Yes (Other)
  Sender: FDA-Public Use
  Company Number: TR-AMGEN-TURSP2012031836

PATIENT
  Age: 35 Year
  Sex: Male
  Weight: 77 kg

DRUGS (1)
  1. ENBREL [Suspect]
     Indication: ANKYLOSING SPONDYLITIS
     Dosage: 50 MG, WEEKLY
     Route: 058
     Dates: start: 20101104

REACTIONS (7)
  - Angina pectoris [Recovered/Resolved]
  - Arrhythmia [Recovered/Resolved]
  - Weight increased [Not Recovered/Not Resolved]
  - Secretion discharge [Recovered/Resolved]
  - Cardiac hypertrophy [Recovered/Resolved]
  - Hypertension [Not Recovered/Not Resolved]
  - Influenza [Recovered/Resolved]
